FAERS Safety Report 13380749 (Version 2)
Quarter: 2017Q2

REPORT INFORMATION
  Report Type: Spontaneous
  Country: FR (occurrence: FR)
  Receive Date: 20170329
  Receipt Date: 20170607
  Transmission Date: 20170830
  Serious: Yes (Life-Threatening, Hospitalization, Other)
  Sender: FDA-Public Use
  Company Number: FR-SUN PHARMACEUTICAL INDUSTRIES LTD-2017R1-136747

PATIENT
  Age: 31 Year
  Sex: Male

DRUGS (2)
  1. ARIPIPRAZOLE. [Suspect]
     Active Substance: ARIPIPRAZOLE
     Indication: BIPOLAR DISORDER
     Dosage: 30 MG, DAILY
     Route: 048
     Dates: start: 2015
  2. LITHIUM. [Suspect]
     Active Substance: LITHIUM
     Indication: BIPOLAR DISORDER
     Dosage: UNK, DAILY
     Route: 048
     Dates: start: 2015

REACTIONS (10)
  - Nystagmus [Unknown]
  - Suicide attempt [Unknown]
  - Tremor [Unknown]
  - Altered state of consciousness [Unknown]
  - Dysphagia [Unknown]
  - Mutism [Not Recovered/Not Resolved]
  - Intentional overdose [Unknown]
  - Toxicity to various agents [Unknown]
  - Psychomotor hyperactivity [Recovering/Resolving]
  - Muscle rigidity [Recovering/Resolving]

NARRATIVE: CASE EVENT DATE: 201504
